FAERS Safety Report 8528139 (Version 4)
Quarter: 2014Q2

REPORT INFORMATION
  Report Type: Report from Study
  Country: AR (occurrence: AR)
  Receive Date: 20120424
  Receipt Date: 20140603
  Transmission Date: 20141212
  Serious: Yes (Other)
  Sender: FDA-Public Use
  Company Number: AR-ROCHE-1061537

PATIENT
  Age: 49 Year
  Sex: Female

DRUGS (6)
  1. XOLAIR [Suspect]
     Indication: ASTHMA
     Dosage: ONE AMPOULE EVERY 15 DAYS.
     Route: 065
     Dates: start: 2005, end: 20110111
  2. XOLAIR [Suspect]
     Route: 065
     Dates: start: 20120616
  3. ENALAPRIL [Concomitant]
  4. BUDESONIDE [Concomitant]
  5. OMEPRAZOL [Concomitant]
  6. SALBUTAMOL [Concomitant]

REACTIONS (9)
  - Fibroma [Not Recovered/Not Resolved]
  - Bronchospasm [Not Recovered/Not Resolved]
  - Blood immunoglobulin E increased [Unknown]
  - Catarrh [Not Recovered/Not Resolved]
  - Increased upper airway secretion [Not Recovered/Not Resolved]
  - Agitation [Not Recovered/Not Resolved]
  - Influenza like illness [Recovering/Resolving]
  - Diabetes mellitus [Unknown]
  - Blood pressure abnormal [Unknown]
